FAERS Safety Report 9203349 (Version 1)
Quarter: 2013Q1

REPORT INFORMATION
  Report Type: Spontaneous
  Country: IE (occurrence: None)
  Receive Date: 20130328
  Receipt Date: 20130328
  Transmission Date: 20140127
  Serious: Yes (Other)
  Sender: FDA-Public Use
  Company Number: 220748

PATIENT
  Sex: Male
  Weight: 3.8 kg

DRUGS (1)
  1. INNOHEP (TINZAPARIN SODIUM) [Suspect]
     Indication: THROMBOSIS PROPHYLAXIS
     Dosage: 3500 IU
     Dates: start: 200403, end: 20040929

REACTIONS (6)
  - Maternal drugs affecting foetus [None]
  - Incorrect drug administration duration [None]
  - Premature separation of placenta [None]
  - Caesarean section [None]
  - Apgar score low [None]
  - Malaise [None]
